FAERS Safety Report 21926981 (Version 1)
Quarter: 2023Q1

REPORT INFORMATION
  Report Type: Spontaneous
  Country: US (occurrence: None)
  Receive Date: 20230128
  Receipt Date: 20230128
  Transmission Date: 20230418
  Serious: No
  Sender: FDA-Public Use
  Company Number: None

PATIENT
  Age: 28 Year
  Sex: Female
  Weight: 67.5 kg

DRUGS (3)
  1. METFORMIN [Suspect]
     Active Substance: METFORMIN HYDROCHLORIDE
     Indication: Glucose tolerance impaired
     Dates: start: 20221214, end: 20230125
  2. Alive gummy multivitamin [Concomitant]
  3. alive gummy calcium and vitamin d [Concomitant]

REACTIONS (3)
  - Fatigue [None]
  - Headache [None]
  - Hypoglycaemia [None]

NARRATIVE: CASE EVENT DATE: 20230123
